FAERS Safety Report 6024359-7 (Version None)
Quarter: 2008Q4

REPORT INFORMATION
  Report Type: 
  Country: None (occurrence: None)
  Receive Date: 20081222
  Receipt Date: 20081021
  Transmission Date: 20090506
  Serious: No
  Sender: FDA-Public Use
  Company Number: SPV1-2008-02270

PATIENT
  Age: 9 Year
  Sex: Male
  Weight: 24.5 kg

DRUGS (2)
  1. VYVANSE [Suspect]
     Indication: ATTENTION DEFICIT/HYPERACTIVITY DISORDER
     Dosage: 50 MG, 1X/DAY:QD, ORAL ; 70 MG, 1X/DAY:QD, ORAL
     Route: 048
     Dates: start: 20071001, end: 20081012
  2. VYVANSE [Suspect]
     Indication: ATTENTION DEFICIT/HYPERACTIVITY DISORDER
     Dosage: 50 MG, 1X/DAY:QD, ORAL ; 70 MG, 1X/DAY:QD, ORAL
     Route: 048
     Dates: start: 20081013

REACTIONS (6)
  - DRUG EFFECT DECREASED [None]
  - DRUG INEFFECTIVE [None]
  - INSOMNIA [None]
  - SPEECH DISORDER [None]
  - TIC [None]
  - TOURETTE'S DISORDER [None]
